FAERS Safety Report 7240086-2 (Version None)
Quarter: 2011Q1

REPORT INFORMATION
  Report Type: 
  Country: None (occurrence: None)
  Receive Date: 20110113
  Receipt Date: 20101231
  Transmission Date: 20110831
  Serious: Yes (Death)
  Sender: FDA-Public Use
  Company Number: IDA-00482

PATIENT
  Age: 82 Year
  Sex: Female

DRUGS (5)
  1. ACETAMINOPHEN AND HYDROCODONE BITARTRATE [Suspect]
     Dosage: DAILY, ORAL
     Route: 048
  2. (DOCUSATE) [Suspect]
     Dosage: DAILY, ORAL
     Route: 048
  3. PROPRANOLOL [Suspect]
     Dosage: DAILY, ORAL
     Route: 048
  4. (LITHIUM) [Suspect]
     Dosage: DAILY, ORAL
     Route: 048
  5. CLOZAPINE [Suspect]
     Dosage: DAILY, ORAL
     Route: 048

REACTIONS (2)
  - TOXICITY TO VARIOUS AGENTS [None]
  - MEDICATION ERROR [None]
